FAERS Safety Report 23518241 (Version 7)
Quarter: 2025Q2

REPORT INFORMATION
  Report Type: Spontaneous
  Country: PT (occurrence: PT)
  Receive Date: 20240213
  Receipt Date: 20250613
  Transmission Date: 20250716
  Serious: Yes (Death, Life-Threatening, Other)
  Sender: SANDOZ
  Company Number: PT-MYLANLABS-2023M1052035

PATIENT

DRUGS (337)
  1. ADALIMUMAB [Suspect]
     Active Substance: ADALIMUMAB
     Indication: Product used for unknown indication
     Route: 065
  2. ADALIMUMAB [Suspect]
     Active Substance: ADALIMUMAB
     Indication: Product used for unknown indication
     Route: 065
  3. ADALIMUMAB [Suspect]
     Active Substance: ADALIMUMAB
     Route: 065
  4. ADALIMUMAB [Suspect]
     Active Substance: ADALIMUMAB
     Route: 065
  5. ADALIMUMAB [Suspect]
     Active Substance: ADALIMUMAB
     Route: 065
  6. ATORVASTATIN [Suspect]
     Active Substance: ATORVASTATIN
     Indication: Product used for unknown indication
     Route: 065
  7. ATORVASTATIN [Suspect]
     Active Substance: ATORVASTATIN
     Indication: Product used for unknown indication
     Route: 065
  8. ATORVASTATIN [Suspect]
     Active Substance: ATORVASTATIN
     Route: 065
  9. ATORVASTATIN [Suspect]
     Active Substance: ATORVASTATIN
     Route: 065
  10. ATORVASTATIN [Suspect]
     Active Substance: ATORVASTATIN
     Route: 065
  11. ACECLOFENAC [Suspect]
     Active Substance: ACECLOFENAC
     Indication: Product used for unknown indication
     Route: 065
  12. ACECLOFENAC [Suspect]
     Active Substance: ACECLOFENAC
     Route: 065
  13. ACECLOFENAC [Suspect]
     Active Substance: ACECLOFENAC
     Route: 065
  14. ACECLOFENAC [Suspect]
     Active Substance: ACECLOFENAC
     Route: 065
  15. ACECLOFENAC [Suspect]
     Active Substance: ACECLOFENAC
     Route: 065
  16. ASPIRIN [Suspect]
     Active Substance: ASPIRIN
     Indication: Product used for unknown indication
     Route: 065
  17. ASPIRIN [Suspect]
     Active Substance: ASPIRIN
     Route: 065
  18. ASPIRIN [Suspect]
     Active Substance: ASPIRIN
     Route: 065
  19. ASPIRIN [Suspect]
     Active Substance: ASPIRIN
     Route: 065
  20. ASPIRIN [Suspect]
     Active Substance: ASPIRIN
     Route: 065
  21. AGOMELATINE [Suspect]
     Active Substance: AGOMELATINE
     Indication: Product used for unknown indication
     Route: 065
  22. AGOMELATINE [Suspect]
     Active Substance: AGOMELATINE
     Route: 065
  23. AGOMELATINE [Suspect]
     Active Substance: AGOMELATINE
     Route: 065
  24. AGOMELATINE [Suspect]
     Active Substance: AGOMELATINE
     Route: 065
  25. AGOMELATINE [Suspect]
     Active Substance: AGOMELATINE
     Route: 065
  26. ALENDRONATE CALCIUM [Suspect]
     Active Substance: ALENDRONATE CALCIUM
     Indication: Product used for unknown indication
     Route: 065
  27. ALENDRONATE CALCIUM [Suspect]
     Active Substance: ALENDRONATE CALCIUM
     Route: 065
  28. ALENDRONATE CALCIUM [Suspect]
     Active Substance: ALENDRONATE CALCIUM
     Route: 065
  29. ALENDRONATE CALCIUM [Suspect]
     Active Substance: ALENDRONATE CALCIUM
     Route: 065
  30. ALENDRONATE CALCIUM [Suspect]
     Active Substance: ALENDRONATE CALCIUM
     Route: 065
  31. ALENDRONATE SODIUM [Suspect]
     Active Substance: ALENDRONATE SODIUM
     Indication: Product used for unknown indication
     Route: 065
  32. ALENDRONIC ACID [Suspect]
     Active Substance: ALENDRONIC ACID
     Indication: Product used for unknown indication
     Route: 065
  33. ALENDRONIC ACID [Suspect]
     Active Substance: ALENDRONIC ACID
     Route: 065
  34. ALENDRONIC ACID [Suspect]
     Active Substance: ALENDRONIC ACID
     Route: 065
  35. ALENDRONIC ACID [Suspect]
     Active Substance: ALENDRONIC ACID
     Route: 065
  36. ALENDRONIC ACID [Suspect]
     Active Substance: ALENDRONIC ACID
     Route: 065
  37. ALISKIREN [Suspect]
     Active Substance: ALISKIREN
     Indication: Product used for unknown indication
     Route: 065
  38. ALISKIREN [Suspect]
     Active Substance: ALISKIREN
     Route: 065
  39. ALISKIREN [Suspect]
     Active Substance: ALISKIREN
     Route: 065
  40. ALISKIREN [Suspect]
     Active Substance: ALISKIREN
     Route: 065
  41. ALISKIREN [Suspect]
     Active Substance: ALISKIREN
     Route: 065
  42. ANASTROZOLE [Suspect]
     Active Substance: ANASTROZOLE
     Indication: Product used for unknown indication
     Route: 065
  43. ANASTROZOLE [Suspect]
     Active Substance: ANASTROZOLE
     Route: 065
  44. ANASTROZOLE [Suspect]
     Active Substance: ANASTROZOLE
     Route: 065
  45. ANASTROZOLE [Suspect]
     Active Substance: ANASTROZOLE
     Route: 065
  46. ANASTROZOLE [Suspect]
     Active Substance: ANASTROZOLE
     Route: 065
  47. BISOPROLOL [Suspect]
     Active Substance: BISOPROLOL
     Indication: Product used for unknown indication
     Route: 065
  48. BISOPROLOL [Suspect]
     Active Substance: BISOPROLOL
     Route: 065
  49. BISOPROLOL [Suspect]
     Active Substance: BISOPROLOL
     Route: 065
  50. BRINZOLAMIDE [Suspect]
     Active Substance: BRINZOLAMIDE
     Indication: Product used for unknown indication
     Route: 065
  51. BRINZOLAMIDE [Suspect]
     Active Substance: BRINZOLAMIDE
     Route: 065
  52. BRINZOLAMIDE [Suspect]
     Active Substance: BRINZOLAMIDE
     Route: 065
  53. BISOPROLOL FUMARATE [Suspect]
     Active Substance: BISOPROLOL FUMARATE
     Indication: Product used for unknown indication
     Route: 065
  54. BUPRENORPHINE [Suspect]
     Active Substance: BUPRENORPHINE
     Indication: Product used for unknown indication
     Route: 065
  55. CELECOXIB [Suspect]
     Active Substance: CELECOXIB
     Indication: Product used for unknown indication
     Route: 065
  56. CHOLECALCIFEROL [Suspect]
     Active Substance: CHOLECALCIFEROL
     Indication: Product used for unknown indication
     Route: 065
  57. CHOLECALCIFEROL [Suspect]
     Active Substance: CHOLECALCIFEROL
     Route: 065
  58. CHOLECALCIFEROL [Suspect]
     Active Substance: CHOLECALCIFEROL
     Route: 065
  59. CHOLECALCIFEROL [Suspect]
     Active Substance: CHOLECALCIFEROL
     Route: 065
  60. CHOLECALCIFEROL [Suspect]
     Active Substance: CHOLECALCIFEROL
     Route: 065
  61. CILAZAPRIL ANHYDROUS [Suspect]
     Active Substance: CILAZAPRIL ANHYDROUS
     Indication: Product used for unknown indication
     Route: 065
  62. CILAZAPRIL ANHYDROUS [Suspect]
     Active Substance: CILAZAPRIL ANHYDROUS
     Route: 065
  63. CILAZAPRIL ANHYDROUS [Suspect]
     Active Substance: CILAZAPRIL ANHYDROUS
     Route: 065
  64. CILAZAPRIL ANHYDROUS [Suspect]
     Active Substance: CILAZAPRIL ANHYDROUS
     Route: 065
  65. CILAZAPRIL ANHYDROUS [Suspect]
     Active Substance: CILAZAPRIL ANHYDROUS
     Route: 065
  66. CODEINE [Suspect]
     Active Substance: CODEINE
     Indication: Product used for unknown indication
     Route: 065
  67. CODEINE PHOSPHATE [Suspect]
     Active Substance: CODEINE PHOSPHATE
     Indication: Product used for unknown indication
     Route: 065
  68. CODEINE SULFATE [Suspect]
     Active Substance: CODEINE SULFATE
     Indication: Product used for unknown indication
     Route: 065
  69. CODEINE SULFATE [Suspect]
     Active Substance: CODEINE SULFATE
     Route: 065
  70. CODEINE SULFATE [Suspect]
     Active Substance: CODEINE SULFATE
     Route: 065
  71. CODEINE SULFATE [Suspect]
     Active Substance: CODEINE SULFATE
     Route: 065
  72. CODEINE SULFATE [Suspect]
     Active Substance: CODEINE SULFATE
     Route: 065
  73. CHOLECALCIFEROL [Suspect]
     Active Substance: CHOLECALCIFEROL
     Indication: Product used for unknown indication
     Route: 065
  74. DONEPEZIL [Suspect]
     Active Substance: DONEPEZIL
     Indication: Product used for unknown indication
     Route: 065
  75. DUTASTERIDE [Suspect]
     Active Substance: DUTASTERIDE
     Indication: Product used for unknown indication
     Route: 065
  76. DUTASTERIDE [Suspect]
     Active Substance: DUTASTERIDE
     Route: 065
  77. DUTASTERIDE [Suspect]
     Active Substance: DUTASTERIDE
     Route: 065
  78. DUTASTERIDE [Suspect]
     Active Substance: DUTASTERIDE
     Route: 065
  79. DUTASTERIDE [Suspect]
     Active Substance: DUTASTERIDE
     Route: 065
  80. DILTIAZEM [Suspect]
     Active Substance: DILTIAZEM
     Indication: Product used for unknown indication
     Route: 065
  81. DILTIAZEM [Suspect]
     Active Substance: DILTIAZEM
     Route: 065
  82. DILTIAZEM [Suspect]
     Active Substance: DILTIAZEM
     Route: 065
  83. DILTIAZEM [Suspect]
     Active Substance: DILTIAZEM
     Route: 065
  84. DILTIAZEM [Suspect]
     Active Substance: DILTIAZEM
     Route: 065
  85. DOCETAXEL [Suspect]
     Active Substance: DOCETAXEL
     Indication: Product used for unknown indication
     Route: 065
  86. DOCETAXEL [Suspect]
     Active Substance: DOCETAXEL
     Route: 065
  87. DOCETAXEL [Suspect]
     Active Substance: DOCETAXEL
     Route: 065
  88. DOCETAXEL [Suspect]
     Active Substance: DOCETAXEL
     Route: 065
  89. DOCETAXEL [Suspect]
     Active Substance: DOCETAXEL
     Route: 065
  90. DOMPERIDONE [Suspect]
     Active Substance: DOMPERIDONE
     Indication: Product used for unknown indication
     Route: 065
  91. DOMPERIDONE [Suspect]
     Active Substance: DOMPERIDONE
     Route: 065
  92. DOMPERIDONE [Suspect]
     Active Substance: DOMPERIDONE
     Route: 065
  93. DOMPERIDONE [Suspect]
     Active Substance: DOMPERIDONE
     Route: 065
  94. DOMPERIDONE [Suspect]
     Active Substance: DOMPERIDONE
     Route: 065
  95. DOMPERIDONE MALEATE [Suspect]
     Active Substance: DOMPERIDONE MALEATE
     Indication: Product used for unknown indication
     Route: 065
  96. ESCHERICHIA COLI [Suspect]
     Active Substance: ESCHERICHIA COLI
     Indication: Product used for unknown indication
     Route: 065
  97. ESCHERICHIA COLI [Suspect]
     Active Substance: ESCHERICHIA COLI
     Route: 065
  98. ESCHERICHIA COLI [Suspect]
     Active Substance: ESCHERICHIA COLI
     Route: 065
  99. ESCHERICHIA COLI [Suspect]
     Active Substance: ESCHERICHIA COLI
     Route: 065
  100. ESCHERICHIA COLI [Suspect]
     Active Substance: ESCHERICHIA COLI
     Route: 065
  101. ESCITALOPRAM [Suspect]
     Active Substance: ESCITALOPRAM OXALATE
     Indication: Product used for unknown indication
     Route: 065
  102. ESCITALOPRAM [Suspect]
     Active Substance: ESCITALOPRAM OXALATE
     Route: 065
  103. ESCITALOPRAM [Suspect]
     Active Substance: ESCITALOPRAM OXALATE
     Route: 065
  104. ESCITALOPRAM OXALATE [Suspect]
     Active Substance: ESCITALOPRAM OXALATE
     Indication: Product used for unknown indication
     Route: 048
  105. ESOMEPRAZOLE [Suspect]
     Active Substance: ESOMEPRAZOLE
     Indication: Product used for unknown indication
     Route: 065
  106. ESOMEPRAZOLE [Suspect]
     Active Substance: ESOMEPRAZOLE
     Route: 065
  107. ESOMEPRAZOLE [Suspect]
     Active Substance: ESOMEPRAZOLE
     Route: 065
  108. ESOMEPRAZOLE [Suspect]
     Active Substance: ESOMEPRAZOLE
     Route: 065
  109. ESOMEPRAZOLE [Suspect]
     Active Substance: ESOMEPRAZOLE
     Route: 065
  110. ETANERCEPT [Suspect]
     Active Substance: ETANERCEPT
     Indication: Blood pressure measurement
     Route: 065
  111. ETANERCEPT [Suspect]
     Active Substance: ETANERCEPT
     Route: 065
  112. ETANERCEPT [Suspect]
     Active Substance: ETANERCEPT
     Route: 065
  113. ETANERCEPT [Suspect]
     Active Substance: ETANERCEPT
     Route: 065
  114. ETANERCEPT [Suspect]
     Active Substance: ETANERCEPT
     Route: 065
  115. EZETIMIBE [Suspect]
     Active Substance: EZETIMIBE
     Indication: Product used for unknown indication
     Route: 065
  116. EZETIMIBE [Suspect]
     Active Substance: EZETIMIBE
     Route: 065
  117. EZETIMIBE [Suspect]
     Active Substance: EZETIMIBE
     Route: 065
  118. EZETIMIBE [Suspect]
     Active Substance: EZETIMIBE
     Route: 065
  119. EZETIMIBE [Suspect]
     Active Substance: EZETIMIBE
     Route: 065
  120. ENOXAPARIN SODIUM [Suspect]
     Active Substance: ENOXAPARIN SODIUM
     Indication: Product used for unknown indication
     Route: 065
  121. ENOXAPARIN SODIUM [Suspect]
     Active Substance: ENOXAPARIN SODIUM
     Route: 065
  122. ENOXAPARIN SODIUM [Suspect]
     Active Substance: ENOXAPARIN SODIUM
     Route: 065
  123. ENOXAPARIN SODIUM [Suspect]
     Active Substance: ENOXAPARIN SODIUM
     Route: 065
  124. ENOXAPARIN SODIUM [Suspect]
     Active Substance: ENOXAPARIN SODIUM
     Route: 065
  125. ESCHERICHIA COLI [Suspect]
     Active Substance: ESCHERICHIA COLI
     Indication: Product used for unknown indication
     Route: 065
  126. ESCHERICHIA COLI [Suspect]
     Active Substance: ESCHERICHIA COLI
     Route: 065
  127. ESCHERICHIA COLI [Suspect]
     Active Substance: ESCHERICHIA COLI
     Route: 065
  128. ESCHERICHIA COLI [Suspect]
     Active Substance: ESCHERICHIA COLI
     Route: 065
  129. ESCHERICHIA COLI [Suspect]
     Active Substance: ESCHERICHIA COLI
     Route: 065
  130. EXEMESTANE [Suspect]
     Active Substance: EXEMESTANE
     Indication: Product used for unknown indication
     Route: 065
  131. EXEMESTANE [Suspect]
     Active Substance: EXEMESTANE
     Route: 065
  132. EXEMESTANE [Suspect]
     Active Substance: EXEMESTANE
     Route: 065
  133. FLUVASTATIN [Suspect]
     Active Substance: FLUVASTATIN SODIUM
     Indication: Product used for unknown indication
     Route: 065
  134. FLUVASTATIN [Suspect]
     Active Substance: FLUVASTATIN SODIUM
     Indication: Product used for unknown indication
     Route: 065
  135. FLUVASTATIN [Suspect]
     Active Substance: FLUVASTATIN SODIUM
     Route: 065
  136. FENOFIBRATE [Suspect]
     Active Substance: FENOFIBRATE
     Indication: Product used for unknown indication
     Route: 065
  137. FENOFIBRATE [Suspect]
     Active Substance: FENOFIBRATE
     Route: 065
  138. FENOFIBRATE [Suspect]
     Active Substance: FENOFIBRATE
     Route: 065
  139. FENOFIBRATE [Suspect]
     Active Substance: FENOFIBRATE
     Route: 065
  140. FENOFIBRATE [Suspect]
     Active Substance: FENOFIBRATE
     Route: 065
  141. NORFLOXACIN [Suspect]
     Active Substance: NORFLOXACIN
     Indication: Product used for unknown indication
     Route: 065
  142. NORFLOXACIN [Suspect]
     Active Substance: NORFLOXACIN
     Route: 065
  143. NORFLOXACIN [Suspect]
     Active Substance: NORFLOXACIN
     Route: 065
  144. NORFLOXACIN [Suspect]
     Active Substance: NORFLOXACIN
     Route: 065
  145. NORFLOXACIN [Suspect]
     Active Substance: NORFLOXACIN
     Route: 065
  146. FLUOXETINE [Suspect]
     Active Substance: FLUOXETINE HYDROCHLORIDE
     Indication: Product used for unknown indication
     Route: 065
  147. FLUOXETINE [Suspect]
     Active Substance: FLUOXETINE HYDROCHLORIDE
     Route: 065
  148. FLUOXETINE [Suspect]
     Active Substance: FLUOXETINE HYDROCHLORIDE
     Route: 065
  149. FLUOXETINE [Suspect]
     Active Substance: FLUOXETINE HYDROCHLORIDE
     Route: 065
  150. FLUOXETINE [Suspect]
     Active Substance: FLUOXETINE HYDROCHLORIDE
     Route: 065
  151. GINKGO [Suspect]
     Active Substance: GINKGO
     Indication: Product used for unknown indication
     Route: 065
  152. GINKGO [Suspect]
     Active Substance: GINKGO
     Route: 065
  153. GINKGO [Suspect]
     Active Substance: GINKGO
     Route: 065
  154. GINKGO [Suspect]
     Active Substance: GINKGO
     Indication: Product used for unknown indication
     Route: 065
  155. GLUCOSAMINE [Suspect]
     Active Substance: GLUCOSAMINE
     Indication: Product used for unknown indication
     Route: 065
  156. GLUCOSAMINE [Suspect]
     Active Substance: GLUCOSAMINE
     Route: 065
  157. GLUCOSAMINE [Suspect]
     Active Substance: GLUCOSAMINE
     Route: 065
  158. GLUCOSAMINE [Suspect]
     Active Substance: GLUCOSAMINE
     Route: 065
  159. GLUCOSAMINE [Suspect]
     Active Substance: GLUCOSAMINE
     Route: 065
  160. NITROGLYCERIN [Suspect]
     Active Substance: NITROGLYCERIN
     Indication: Product used for unknown indication
     Route: 065
  161. HUMAN IMMUNOGLOBULIN G [Suspect]
     Active Substance: HUMAN IMMUNOGLOBULIN G
     Indication: Product used for unknown indication
     Route: 065
  162. HUMAN IMMUNOGLOBULIN G [Suspect]
     Active Substance: HUMAN IMMUNOGLOBULIN G
     Indication: Product used for unknown indication
     Route: 065
  163. HYDROCHLOROTHIAZIDE [Suspect]
     Active Substance: HYDROCHLOROTHIAZIDE
     Indication: Product used for unknown indication
     Route: 065
  164. HYDROCHLOROTHIAZIDE [Suspect]
     Active Substance: HYDROCHLOROTHIAZIDE
     Route: 065
  165. HYDROCHLOROTHIAZIDE [Suspect]
     Active Substance: HYDROCHLOROTHIAZIDE
     Route: 065
  166. HYDROCHLOROTHIAZIDE [Suspect]
     Active Substance: HYDROCHLOROTHIAZIDE
     Route: 065
  167. HYDROCHLOROTHIAZIDE [Suspect]
     Active Substance: HYDROCHLOROTHIAZIDE
     Route: 065
  168. HYDROMORPHONE [Suspect]
     Active Substance: HYDROMORPHONE
     Indication: Product used for unknown indication
     Route: 065
  169. IMATINIB [Suspect]
     Active Substance: IMATINIB
     Indication: Product used for unknown indication
     Route: 065
  170. IMATINIB [Suspect]
     Active Substance: IMATINIB
     Route: 065
  171. IMATINIB [Suspect]
     Active Substance: IMATINIB
     Route: 065
  172. IMATINIB [Suspect]
     Active Substance: IMATINIB
     Route: 065
  173. IMATINIB [Suspect]
     Active Substance: IMATINIB
     Route: 065
  174. IBANDRONATE SODIUM [Suspect]
     Active Substance: IBANDRONATE SODIUM
     Indication: Product used for unknown indication
     Route: 065
  175. IBANDRONATE SODIUM [Suspect]
     Active Substance: IBANDRONATE SODIUM
     Route: 065
  176. IBANDRONATE SODIUM [Suspect]
     Active Substance: IBANDRONATE SODIUM
     Route: 065
  177. IBANDRONATE SODIUM [Suspect]
     Active Substance: IBANDRONATE SODIUM
     Route: 065
  178. IBANDRONATE SODIUM [Suspect]
     Active Substance: IBANDRONATE SODIUM
     Route: 065
  179. IMATINIB MESYLATE [Suspect]
     Active Substance: IMATINIB MESYLATE
     Indication: Product used for unknown indication
     Route: 065
  180. INDOMETHACIN [Suspect]
     Active Substance: INDOMETHACIN
     Indication: Product used for unknown indication
     Route: 065
  181. INDOMETHACIN [Suspect]
     Active Substance: INDOMETHACIN
     Route: 065
  182. INDOMETHACIN [Suspect]
     Active Substance: INDOMETHACIN
     Route: 065
  183. INDOMETHACIN [Suspect]
     Active Substance: INDOMETHACIN
     Route: 065
  184. INDOMETHACIN [Suspect]
     Active Substance: INDOMETHACIN
     Route: 065
  185. IODINE [Suspect]
     Active Substance: IODINE
     Indication: Product used for unknown indication
     Route: 065
  186. HYDROMORPHONE HYDROCHLORIDE [Suspect]
     Active Substance: HYDROMORPHONE HYDROCHLORIDE
     Indication: Product used for unknown indication
     Route: 065
  187. LETROZOLE [Suspect]
     Active Substance: LETROZOLE
     Indication: Product used for unknown indication
     Route: 065
  188. LETROZOLE [Suspect]
     Active Substance: LETROZOLE
     Route: 065
  189. LETROZOLE [Suspect]
     Active Substance: LETROZOLE
     Route: 065
  190. LETROZOLE [Suspect]
     Active Substance: LETROZOLE
     Route: 065
  191. LETROZOLE [Suspect]
     Active Substance: LETROZOLE
     Route: 065
  192. LEDIPASVIR [Suspect]
     Active Substance: LEDIPASVIR
     Indication: Product used for unknown indication
     Route: 065
  193. LEDIPASVIR [Suspect]
     Active Substance: LEDIPASVIR
     Route: 065
  194. LEDIPASVIR [Suspect]
     Active Substance: LEDIPASVIR
     Route: 065
  195. LEDIPASVIR [Suspect]
     Active Substance: LEDIPASVIR
     Route: 065
  196. LEDIPASVIR [Suspect]
     Active Substance: LEDIPASVIR
     Route: 065
  197. LEVOCETIRIZINE HYDROCHLORIDE [Suspect]
     Active Substance: LEVOCETIRIZINE HYDROCHLORIDE
     Indication: Product used for unknown indication
     Route: 065
  198. MIRTAZAPINE [Suspect]
     Active Substance: MIRTAZAPINE
     Indication: Product used for unknown indication
     Route: 065
  199. MIRTAZAPINE [Suspect]
     Active Substance: MIRTAZAPINE
     Route: 065
  200. MIRTAZAPINE [Suspect]
     Active Substance: MIRTAZAPINE
     Route: 065
  201. MIRTAZAPINE [Suspect]
     Active Substance: MIRTAZAPINE
     Route: 065
  202. MIRTAZAPINE [Suspect]
     Active Substance: MIRTAZAPINE
     Route: 065
  203. MOTILIUM [Suspect]
     Active Substance: DOMPERIDONE
     Indication: Product used for unknown indication
     Route: 065
  204. MYCOPHENOLATE MOFETIL [Suspect]
     Active Substance: MYCOPHENOLATE MOFETIL
     Indication: Product used for unknown indication
     Route: 065
  205. MYCOPHENOLATE MOFETIL [Suspect]
     Active Substance: MYCOPHENOLATE MOFETIL
     Route: 065
  206. MYCOPHENOLATE MOFETIL [Suspect]
     Active Substance: MYCOPHENOLATE MOFETIL
     Route: 065
  207. MYCOPHENOLATE MOFETIL [Suspect]
     Active Substance: MYCOPHENOLATE MOFETIL
     Route: 065
  208. MYCOPHENOLATE MOFETIL [Suspect]
     Active Substance: MYCOPHENOLATE MOFETIL
     Route: 065
  209. MYCOPHENOLIC ACID [Suspect]
     Active Substance: MYCOPHENOLIC ACID
     Indication: Product used for unknown indication
     Route: 065
  210. NILOTINIB [Suspect]
     Active Substance: NILOTINIB
     Indication: Product used for unknown indication
     Route: 065
  211. NILOTINIB [Suspect]
     Active Substance: NILOTINIB
     Route: 065
  212. NILOTINIB [Suspect]
     Active Substance: NILOTINIB
     Route: 065
  213. NILOTINIB [Suspect]
     Active Substance: NILOTINIB
     Route: 065
  214. NILOTINIB [Suspect]
     Active Substance: NILOTINIB
     Route: 065
  215. NIMESULIDE [Suspect]
     Active Substance: NIMESULIDE
     Indication: Product used for unknown indication
     Route: 065
  216. NIMESULIDE [Suspect]
     Active Substance: NIMESULIDE
     Route: 065
  217. NIMESULIDE [Suspect]
     Active Substance: NIMESULIDE
     Route: 065
  218. NIMESULIDE [Suspect]
     Active Substance: NIMESULIDE
     Route: 065
  219. NIMESULIDE [Suspect]
     Active Substance: NIMESULIDE
     Route: 065
  220. NITROGLYCERIN [Suspect]
     Active Substance: NITROGLYCERIN
     Indication: Product used for unknown indication
     Route: 065
  221. NITROGLYCERIN [Suspect]
     Active Substance: NITROGLYCERIN
     Route: 065
  222. NITROGLYCERIN [Suspect]
     Active Substance: NITROGLYCERIN
     Route: 065
  223. NITROGLYCERIN [Suspect]
     Active Substance: NITROGLYCERIN
     Route: 065
  224. NITROGLYCERIN [Suspect]
     Active Substance: NITROGLYCERIN
     Route: 065
  225. NORFLOXACIN [Suspect]
     Active Substance: NORFLOXACIN
     Indication: Product used for unknown indication
     Route: 065
  226. ACETAMINOPHEN [Suspect]
     Active Substance: ACETAMINOPHEN
     Indication: Product used for unknown indication
     Route: 065
  227. ACETAMINOPHEN [Suspect]
     Active Substance: ACETAMINOPHEN
     Indication: Product used for unknown indication
     Route: 065
  228. ACETAMINOPHEN [Suspect]
     Active Substance: ACETAMINOPHEN
     Route: 065
  229. ACETAMINOPHEN [Suspect]
     Active Substance: ACETAMINOPHEN
     Route: 065
  230. ACETAMINOPHEN [Suspect]
     Active Substance: ACETAMINOPHEN
     Route: 065
  231. ACETAMINOPHEN [Suspect]
     Active Substance: ACETAMINOPHEN
     Route: 065
  232. ACETAMINOPHEN [Suspect]
     Active Substance: ACETAMINOPHEN
     Route: 065
  233. ACETAMINOPHEN [Suspect]
     Active Substance: ACETAMINOPHEN
     Route: 065
  234. ACETAMINOPHEN [Suspect]
     Active Substance: ACETAMINOPHEN
     Route: 065
  235. PITAVASTATIN [Suspect]
     Active Substance: PITAVASTATIN
     Indication: Product used for unknown indication
     Route: 065
  236. PITAVASTATIN [Suspect]
     Active Substance: PITAVASTATIN
     Route: 065
  237. PITAVASTATIN [Suspect]
     Active Substance: PITAVASTATIN
     Route: 065
  238. PITAVASTATIN [Suspect]
     Active Substance: PITAVASTATIN
     Route: 065
  239. PITAVASTATIN [Suspect]
     Active Substance: PITAVASTATIN
     Route: 065
  240. PRAVASTATIN [Suspect]
     Active Substance: PRAVASTATIN
     Indication: Product used for unknown indication
     Route: 065
  241. PRAVASTATIN [Suspect]
     Active Substance: PRAVASTATIN
     Route: 065
  242. PRAVASTATIN [Suspect]
     Active Substance: PRAVASTATIN
     Route: 065
  243. PRAVASTATIN [Suspect]
     Active Substance: PRAVASTATIN
     Route: 065
  244. PRAVASTATIN [Suspect]
     Active Substance: PRAVASTATIN
     Route: 065
  245. PREGABALIN [Suspect]
     Active Substance: PREGABALIN
     Indication: Product used for unknown indication
     Route: 065
  246. PREGABALIN [Suspect]
     Active Substance: PREGABALIN
     Indication: Product used for unknown indication
     Route: 065
  247. PREGABALIN [Suspect]
     Active Substance: PREGABALIN
     Route: 065
  248. PENTAZOCINE [Suspect]
     Active Substance: PENTAZOCINE
     Indication: Product used for unknown indication
     Route: 065
  249. PENTAZOCINE [Suspect]
     Active Substance: PENTAZOCINE
     Route: 065
  250. PENTAZOCINE [Suspect]
     Active Substance: PENTAZOCINE
     Route: 065
  251. PENTAZOCINE [Suspect]
     Active Substance: PENTAZOCINE
     Route: 065
  252. PENTAZOCINE [Suspect]
     Active Substance: PENTAZOCINE
     Route: 065
  253. PENTOXIFYLLINE [Suspect]
     Active Substance: PENTOXIFYLLINE
     Indication: Product used for unknown indication
     Route: 065
  254. PENTOXIFYLLINE [Suspect]
     Active Substance: PENTOXIFYLLINE
     Route: 065
  255. PENTOXIFYLLINE [Suspect]
     Active Substance: PENTOXIFYLLINE
     Route: 065
  256. PENTOXIFYLLINE [Suspect]
     Active Substance: PENTOXIFYLLINE
     Route: 065
  257. PENTOXIFYLLINE [Suspect]
     Active Substance: PENTOXIFYLLINE
     Route: 065
  258. PENTOXIFYLLINE [Suspect]
     Active Substance: PENTOXIFYLLINE
     Indication: Product used for unknown indication
     Route: 065
  259. POTASSIUM IODIDE [Suspect]
     Active Substance: POTASSIUM IODIDE
     Indication: Product used for unknown indication
     Route: 065
  260. POTASSIUM IODIDE [Suspect]
     Active Substance: POTASSIUM IODIDE
     Route: 065
  261. POTASSIUM IODIDE [Suspect]
     Active Substance: POTASSIUM IODIDE
     Route: 065
  262. POTASSIUM IODIDE [Suspect]
     Active Substance: POTASSIUM IODIDE
     Route: 065
  263. POTASSIUM IODIDE [Suspect]
     Active Substance: POTASSIUM IODIDE
     Route: 065
  264. PROPRANOLOL [Suspect]
     Active Substance: PROPRANOLOL HYDROCHLORIDE
     Indication: Product used for unknown indication
     Route: 065
  265. PROPRANOLOL [Suspect]
     Active Substance: PROPRANOLOL HYDROCHLORIDE
     Route: 065
  266. PROPRANOLOL [Suspect]
     Active Substance: PROPRANOLOL HYDROCHLORIDE
     Route: 065
  267. PROPRANOLOL [Suspect]
     Active Substance: PROPRANOLOL HYDROCHLORIDE
     Route: 065
  268. PROPRANOLOL [Suspect]
     Active Substance: PROPRANOLOL HYDROCHLORIDE
     Route: 065
  269. PROPRANOLOL HYDROCHLORIDE [Suspect]
     Active Substance: PROPRANOLOL HYDROCHLORIDE
     Indication: Product used for unknown indication
     Route: 065
  270. RABIES IMMUNE GLOBULIN (HUMAN) [Suspect]
     Active Substance: RABIES IMMUNE GLOBULIN (HUMAN)
     Indication: Product used for unknown indication
     Route: 065
  271. RIBAVIRIN [Suspect]
     Active Substance: RIBAVIRIN
     Indication: Product used for unknown indication
     Route: 065
  272. RIBAVIRIN [Suspect]
     Active Substance: RIBAVIRIN
     Route: 065
  273. RIBAVIRIN [Suspect]
     Active Substance: RIBAVIRIN
     Route: 065
  274. RIBAVIRIN [Suspect]
     Active Substance: RIBAVIRIN
     Route: 065
  275. RIBAVIRIN [Suspect]
     Active Substance: RIBAVIRIN
     Route: 065
  276. SERTRALINE [Suspect]
     Active Substance: SERTRALINE HYDROCHLORIDE
     Indication: Product used for unknown indication
     Route: 065
  277. SERTRALINE [Suspect]
     Active Substance: SERTRALINE HYDROCHLORIDE
     Indication: Product used for unknown indication
     Route: 065
  278. SERTRALINE [Suspect]
     Active Substance: SERTRALINE HYDROCHLORIDE
     Route: 065
  279. SIMVASTATIN [Suspect]
     Active Substance: SIMVASTATIN
     Indication: Product used for unknown indication
     Route: 065
  280. SIMVASTATIN [Suspect]
     Active Substance: SIMVASTATIN
     Route: 065
  281. SIMVASTATIN [Suspect]
     Active Substance: SIMVASTATIN
     Route: 065
  282. SIMVASTATIN [Suspect]
     Active Substance: SIMVASTATIN
     Route: 065
  283. SIMVASTATIN [Suspect]
     Active Substance: SIMVASTATIN
     Route: 065
  284. SODIUM PICOSULFATE [Suspect]
     Active Substance: SODIUM PICOSULFATE
     Indication: Product used for unknown indication
     Route: 065
  285. SODIUM PICOSULFATE [Suspect]
     Active Substance: SODIUM PICOSULFATE
     Route: 065
  286. SODIUM PICOSULFATE [Suspect]
     Active Substance: SODIUM PICOSULFATE
     Route: 065
  287. SODIUM PICOSULFATE [Suspect]
     Active Substance: SODIUM PICOSULFATE
     Route: 065
  288. SODIUM PICOSULFATE [Suspect]
     Active Substance: SODIUM PICOSULFATE
     Route: 065
  289. SOFOSBUVIR [Suspect]
     Active Substance: SOFOSBUVIR
     Indication: Product used for unknown indication
     Route: 065
  290. SOFOSBUVIR [Suspect]
     Active Substance: SOFOSBUVIR
     Route: 065
  291. SOFOSBUVIR [Suspect]
     Active Substance: SOFOSBUVIR
     Route: 065
  292. SOFOSBUVIR [Suspect]
     Active Substance: SOFOSBUVIR
     Route: 065
  293. SOFOSBUVIR [Suspect]
     Active Substance: SOFOSBUVIR
     Route: 065
  294. TAMSULOSIN [Suspect]
     Active Substance: TAMSULOSIN
     Indication: Product used for unknown indication
     Route: 065
  295. TAMSULOSIN [Suspect]
     Active Substance: TAMSULOSIN
     Route: 065
  296. TAMSULOSIN [Suspect]
     Active Substance: TAMSULOSIN
     Route: 065
  297. TAMSULOSIN [Suspect]
     Active Substance: TAMSULOSIN
     Route: 065
  298. TAMSULOSIN [Suspect]
     Active Substance: TAMSULOSIN
     Route: 065
  299. TELMISARTAN [Suspect]
     Active Substance: TELMISARTAN
     Indication: Product used for unknown indication
     Route: 065
  300. TELMISARTAN [Suspect]
     Active Substance: TELMISARTAN
     Route: 065
  301. TELMISARTAN [Suspect]
     Active Substance: TELMISARTAN
     Route: 065
  302. TELMISARTAN [Suspect]
     Active Substance: TELMISARTAN
     Route: 065
  303. TELMISARTAN [Suspect]
     Active Substance: TELMISARTAN
     Route: 065
  304. TAMSULOSIN HYDROCHLORIDE [Suspect]
     Active Substance: TAMSULOSIN HYDROCHLORIDE
     Indication: Product used for unknown indication
     Route: 065
  305. TAMSULOSIN HYDROCHLORIDE [Suspect]
     Active Substance: TAMSULOSIN HYDROCHLORIDE
     Indication: Product used for unknown indication
     Route: 065
  306. TOCILIZUMAB [Suspect]
     Active Substance: TOCILIZUMAB
     Indication: Product used for unknown indication
     Route: 065
  307. TOCILIZUMAB [Suspect]
     Active Substance: TOCILIZUMAB
     Route: 065
  308. TOCILIZUMAB [Suspect]
     Active Substance: TOCILIZUMAB
     Route: 065
  309. TOCILIZUMAB [Suspect]
     Active Substance: TOCILIZUMAB
     Route: 065
  310. TOCILIZUMAB [Suspect]
     Active Substance: TOCILIZUMAB
     Route: 065
  311. TRAMADOL [Suspect]
     Active Substance: TRAMADOL
     Indication: Product used for unknown indication
     Route: 065
  312. TRAMADOL [Suspect]
     Active Substance: TRAMADOL
     Route: 065
  313. TRAMADOL [Suspect]
     Active Substance: TRAMADOL
     Route: 065
  314. TRAMADOL [Suspect]
     Active Substance: TRAMADOL
     Route: 065
  315. TRAMADOL [Suspect]
     Active Substance: TRAMADOL
     Route: 065
  316. VENLAFAXINE [Suspect]
     Active Substance: VENLAFAXINE HYDROCHLORIDE
     Indication: Product used for unknown indication
     Route: 065
  317. VENLAFAXINE [Suspect]
     Active Substance: VENLAFAXINE HYDROCHLORIDE
     Route: 065
  318. VENLAFAXINE [Suspect]
     Active Substance: VENLAFAXINE HYDROCHLORIDE
     Route: 065
  319. VERAPAMIL [Suspect]
     Active Substance: VERAPAMIL HYDROCHLORIDE
     Indication: Product used for unknown indication
     Route: 065
  320. VERAPAMIL [Suspect]
     Active Substance: VERAPAMIL HYDROCHLORIDE
     Route: 065
  321. VERAPAMIL [Suspect]
     Active Substance: VERAPAMIL HYDROCHLORIDE
     Route: 065
  322. VERAPAMIL [Suspect]
     Active Substance: VERAPAMIL HYDROCHLORIDE
     Route: 065
  323. VERAPAMIL [Suspect]
     Active Substance: VERAPAMIL HYDROCHLORIDE
     Route: 065
  324. VORTIOXETINE [Suspect]
     Active Substance: VORTIOXETINE
     Indication: Product used for unknown indication
     Route: 065
  325. VORTIOXETINE [Suspect]
     Active Substance: VORTIOXETINE
     Route: 065
  326. VORTIOXETINE [Suspect]
     Active Substance: VORTIOXETINE
     Route: 065
  327. VORTIOXETINE [Suspect]
     Active Substance: VORTIOXETINE
     Route: 065
  328. VORTIOXETINE [Suspect]
     Active Substance: VORTIOXETINE
     Route: 065
  329. XYZAL [Suspect]
     Active Substance: LEVOCETIRIZINE DIHYDROCHLORIDE
     Indication: Product used for unknown indication
     Route: 065
  330. XYZAL [Suspect]
     Active Substance: LEVOCETIRIZINE DIHYDROCHLORIDE
     Route: 065
  331. XYZAL [Suspect]
     Active Substance: LEVOCETIRIZINE DIHYDROCHLORIDE
     Route: 065
  332. ZOLEDRONIC ACID [Suspect]
     Active Substance: ZOLEDRONIC ACID
     Indication: Product used for unknown indication
     Route: 065
  333. ZOLEDRONIC ACID [Suspect]
     Active Substance: ZOLEDRONIC ACID
     Route: 065
  334. ZOLEDRONIC ACID [Suspect]
     Active Substance: ZOLEDRONIC ACID
     Route: 065
  335. ZOLEDRONIC ACID [Suspect]
     Active Substance: ZOLEDRONIC ACID
     Route: 065
  336. ZOLEDRONIC ACID [Suspect]
     Active Substance: ZOLEDRONIC ACID
     Route: 065
  337. ZOMETA [Suspect]
     Active Substance: ZOLEDRONIC ACID
     Indication: Product used for unknown indication
     Route: 065

REACTIONS (47)
  - Altered state of consciousness [Fatal]
  - Haemorrhagic stroke [Fatal]
  - Cardio-respiratory arrest [Fatal]
  - Headache [Fatal]
  - Decreased appetite [Fatal]
  - Blindness [Fatal]
  - Generalised oedema [Fatal]
  - Chills [Fatal]
  - Head discomfort [Fatal]
  - Coma [Fatal]
  - Haematemesis [Fatal]
  - Ocular discomfort [Fatal]
  - Fall [Fatal]
  - Blood pressure increased [Fatal]
  - Urinary tract disorder [Fatal]
  - Eye pain [Fatal]
  - Myalgia [Fatal]
  - Amaurosis fugax [Fatal]
  - Presyncope [Fatal]
  - Ascites [Fatal]
  - Diarrhoea [Fatal]
  - Vision blurred [Fatal]
  - Vomiting [Fatal]
  - Sepsis [Fatal]
  - Tinnitus [Fatal]
  - Pruritus [Fatal]
  - Fatigue [Fatal]
  - Pyrexia [Fatal]
  - Abdominal pain [Fatal]
  - Vomiting [Fatal]
  - Vision blurred [Fatal]
  - Arthralgia [Fatal]
  - Haematuria [Fatal]
  - Nausea [Fatal]
  - Insomnia [Fatal]
  - Tachycardia [Fatal]
  - Diplopia [Fatal]
  - Syncope [Fatal]
  - Abdominal pain upper [Fatal]
  - Asthenia [Fatal]
  - Dizziness [Fatal]
  - Malaise [Fatal]
  - Photophobia [Fatal]
  - Dyspnoea [Fatal]
  - Cough [Fatal]
  - Somnolence [Fatal]
  - Off label use [Unknown]
